FAERS Safety Report 16833559 (Version 2)
Quarter: 2019Q4

REPORT INFORMATION
  Report Type: Report from Study
  Country: US (occurrence: US)
  Receive Date: 20190920
  Receipt Date: 20191002
  Transmission Date: 20200122
  Serious: Yes (Other)
  Sender: FDA-Public Use
  Company Number: US-PFIZER INC-2019407316

PATIENT
  Age: 76 Year
  Sex: Female

DRUGS (2)
  1. IBRANCE [Suspect]
     Active Substance: PALBOCICLIB
     Dosage: 125 MG, CYCLIC [DAILY DAY 1-21 OF 28 DAY]
     Route: 048
     Dates: start: 201909
  2. IBRANCE [Suspect]
     Active Substance: PALBOCICLIB
     Indication: BREAST CANCER
     Dosage: 125 MG, DAILY (FOR 21 DAYS ON AND 7 DAYS OFF)
     Route: 048
     Dates: start: 20190717, end: 20190913

REACTIONS (8)
  - Hypotension [Unknown]
  - Decreased appetite [Unknown]
  - Constipation [Unknown]
  - Back pain [Unknown]
  - Product dose omission [Unknown]
  - Anaemia [Recovering/Resolving]
  - Pain in extremity [Unknown]
  - Bone marrow failure [Recovering/Resolving]

NARRATIVE: CASE EVENT DATE: 2019
